FAERS Safety Report 23367275 (Version 1)
Quarter: 2024Q1

REPORT INFORMATION
  Report Type: Spontaneous
  Country: FR (occurrence: FR)
  Receive Date: 20240104
  Receipt Date: 20240104
  Transmission Date: 20240409
  Serious: Yes (Hospitalization)
  Sender: FDA-Public Use
  Company Number: None

PATIENT
  Age: 14 Year
  Sex: Male
  Weight: 48 kg

DRUGS (4)
  1. CLINDAMYCIN PHOSPHATE [Suspect]
     Active Substance: CLINDAMYCIN PHOSPHATE
     Indication: Pleurisy bacterial
     Dosage: 10 MG/KG, 4X/DAY
     Route: 042
     Dates: start: 20231123, end: 20231125
  2. CLINDAMYCIN PHOSPHATE [Suspect]
     Active Substance: CLINDAMYCIN PHOSPHATE
     Dosage: 10 MG/KG, 4X/DAY
     Route: 042
     Dates: start: 20231130, end: 20231201
  3. AMOXICILLIN [Suspect]
     Active Substance: AMOXICILLIN
     Indication: Pleurisy bacterial
     Dosage: 200 MG/KG, 1X/DAY
     Route: 042
     Dates: start: 20231124, end: 20231206
  4. ACETAMINOPHEN [Concomitant]
     Active Substance: ACETAMINOPHEN
     Dosage: UNK

REACTIONS (2)
  - Hepatic cytolysis [Recovering/Resolving]
  - Off label use [Unknown]

NARRATIVE: CASE EVENT DATE: 20231123
